FAERS Safety Report 24127202 (Version 1)
Quarter: 2024Q3

REPORT INFORMATION
  Report Type: Report from Study
  Country: US (occurrence: US)
  Receive Date: 20240723
  Receipt Date: 20240723
  Transmission Date: 20241016
  Serious: No
  Sender: VANDA PHARMACEUTICALS
  Company Number: US-VANDA PHARMACEUTICALS, INC-2023TASUS006446

PATIENT
  Sex: Female
  Weight: 38.458 kg

DRUGS (2)
  1. HETLIOZ LQ [Suspect]
     Active Substance: TASIMELTEON
     Indication: Insomnia
     Dosage: 20 MILLIGRAM (5 ML), QHS (AT THE SAME TIME EVERY NIGHT WITHOUT FOOD)
     Route: 048
     Dates: start: 20210920
  2. ABILIFY [Suspect]
     Active Substance: ARIPIPRAZOLE
     Indication: Product used for unknown indication
     Dosage: UNK

REACTIONS (1)
  - Sleep disorder [Unknown]
